FAERS Safety Report 6157163-X (Version None)
Quarter: 2009Q2

REPORT INFORMATION
  Report Type: 
  Country: None (occurrence: None)
  Receive Date: 20090416
  Receipt Date: 20090410
  Transmission Date: 20091009
  Serious: No
  Sender: FDA-Public Use
  Company Number: US-B.I. PHARMACEUTICALS,INC./RIDGEFIELD-2009-BP-03781BP

PATIENT
  Age: 73 Year
  Sex: Male

DRUGS (4)
  1. FLOMAX [Suspect]
     Indication: BENIGN PROSTATIC HYPERPLASIA
     Dosage: .4MG
     Dates: start: 20090319, end: 20090324
  2. NORVASC [Concomitant]
     Dosage: 5MG
  3. TERAZOSIN [Concomitant]
     Dosage: 5MG
  4. ASPIRIN [Concomitant]
     Dosage: 325MG

REACTIONS (3)
  - DIZZINESS [None]
  - NAUSEA [None]
  - VOMITING [None]
